FAERS Safety Report 25778579 (Version 1)
Quarter: 2025Q3

REPORT INFORMATION
  Report Type: Other
  Country: US (occurrence: US)
  Receive Date: 20250909
  Receipt Date: 20250909
  Transmission Date: 20251020
  Serious: Yes (Death, Hospitalization)
  Sender: ANI
  Company Number: US-ANIPHARMA-030460

PATIENT
  Age: 3 Year
  Sex: Female

DRUGS (11)
  1. TEMOZOLOMIDE [Suspect]
     Active Substance: TEMOZOLOMIDE
     Indication: Spindle cell sarcoma
  2. CYCLOPHOSPHAMIDE [Suspect]
     Active Substance: CYCLOPHOSPHAMIDE
     Indication: Spindle cell sarcoma
  3. IFOSFAMIDE [Concomitant]
     Active Substance: IFOSFAMIDE
     Indication: Spindle cell sarcoma
  4. ETOPOSIDE [Concomitant]
     Active Substance: ETOPOSIDE
     Indication: Spindle cell sarcoma
  5. VINCRISTINE [Concomitant]
     Active Substance: VINCRISTINE
     Indication: Spindle cell sarcoma
  6. IRINOTECAN [Concomitant]
     Active Substance: IRINOTECAN
     Indication: Spindle cell sarcoma
  7. DOXORUBICIN [Concomitant]
     Active Substance: DOXORUBICIN
     Indication: Spindle cell sarcoma
  8. DACTINOMYCIN [Concomitant]
     Active Substance: DACTINOMYCIN
     Indication: Spindle cell sarcoma
  9. TOPOTECAN [Concomitant]
     Active Substance: TOPOTECAN HYDROCHLORIDE
     Indication: Spindle cell sarcoma
  10. VINORELBINE [Concomitant]
     Active Substance: VINORELBINE TARTRATE
     Indication: Spindle cell sarcoma
  11. CYCLOPHOSPHAMIDE [Suspect]
     Active Substance: CYCLOPHOSPHAMIDE
     Indication: Spindle cell sarcoma

REACTIONS (1)
  - Drug ineffective [Fatal]
